FAERS Safety Report 10144970 (Version 3)
Quarter: 2014Q2

REPORT INFORMATION
  Report Type: Spontaneous
  Country: BE (occurrence: BE)
  Receive Date: 20140430
  Receipt Date: 20140602
  Transmission Date: 20141212
  Serious: Yes (Other)
  Sender: FDA-Public Use
  Company Number: BE-AMGEN-BELSP2014024331

PATIENT
  Age: 58 Year
  Sex: Female
  Weight: 46.8 kg

DRUGS (5)
  1. ARANESP [Suspect]
     Indication: NEPHROGENIC ANAEMIA
     Dosage: 40 UNK, QWK
     Route: 042
     Dates: start: 20091030
  2. AMOXI-CLAVULAN                     /00852501/ [Suspect]
     Indication: BRONCHITIS
     Dosage: 875 UNK, BID
     Route: 048
     Dates: start: 20140103, end: 20140110
  3. LOSARTAN [Suspect]
     Indication: HYPERTENSION
     Dosage: 100 MG, QD
     Route: 048
     Dates: start: 2011, end: 20140327
  4. PANTOPRAZOLE [Suspect]
     Indication: REFLUX GASTRITIS
     Dosage: 20 MG, QD
     Route: 048
     Dates: start: 2011, end: 20140403
  5. CETRIZINE [Concomitant]
     Indication: PRURITUS
     Dosage: 10 MG, QD
     Route: 048
     Dates: start: 20140306, end: 20140417

REACTIONS (5)
  - Haemoglobin decreased [Not Recovered/Not Resolved]
  - Therapeutic response decreased [Not Recovered/Not Resolved]
  - Anaemia [Unknown]
  - Myelodysplastic syndrome [Unknown]
  - Malnutrition [Unknown]
